FAERS Safety Report 8662939 (Version 3)
Quarter: 2012Q4

REPORT INFORMATION
  Report Type: 
  Country: US (occurrence: US)
  Receive Date: 20120712
  Receipt Date: 20120910
  Transmission Date: 20130627
  Serious: No
  Sender: FDA-Public Use
  Company Number: US-009507513-1207USA000816

PATIENT

DRUGS (6)
  1. VICTRELIS [Suspect]
     Dosage: 800 mg, tid
     Dates: start: 201203, end: 20120510
  2. RIBAPAK [Suspect]
  3. PEGASYS [Suspect]
  4. SIMVASTATIN TABLETS, USP [Concomitant]
  5. HYDROCHLOROTHIAZIDE (+) LISINOPRIL [Concomitant]
  6. PLAVIX [Concomitant]

REACTIONS (1)
  - Anaemia [Unknown]
